FAERS Safety Report 9448164 (Version 1)
Quarter: 2013Q3

REPORT INFORMATION
  Report Type: Spontaneous
  Country: CH (occurrence: None)
  Receive Date: 20130806
  Receipt Date: 20130806
  Transmission Date: 20140515
  Serious: Yes (Hospitalization, Other)
  Sender: FDA-Public Use
  Company Number: 2013P1013963

PATIENT
  Age: 62 Year
  Sex: Male

DRUGS (3)
  1. AMOXICILLIN + CLAVULANATE POTASSIUM [Suspect]
     Indication: DERMO-HYPODERMITIS
  2. ACENOCOUMAROL [Suspect]
     Indication: ATRIAL FIBRILLATION
     Dosage: ; PO
     Route: 048
  3. ANGIOTENSIN-CONVERTING [Concomitant]

REACTIONS (4)
  - Drug interaction [None]
  - Haemorrhage [None]
  - Anaemia [None]
  - Oesophageal varices haemorrhage [None]
